FAERS Safety Report 13195753 (Version 1)
Quarter: 2017Q1

REPORT INFORMATION
  Report Type: Spontaneous
  Country: US (occurrence: US)
  Receive Date: 20170208
  Receipt Date: 20170208
  Transmission Date: 20170428
  Serious: No
  Sender: FDA-Public Use
  Company Number: US-ASTRAZENECA-2017SE11376

PATIENT
  Sex: Male
  Weight: 108 kg

DRUGS (4)
  1. PRADAXA [Concomitant]
     Active Substance: DABIGATRAN ETEXILATE MESYLATE
     Indication: ATRIAL FIBRILLATION
  2. DALIRESP [Suspect]
     Active Substance: ROFLUMILAST
     Indication: SECRETION DISCHARGE
     Route: 048
     Dates: start: 20170110, end: 201701
  3. DALIRESP [Suspect]
     Active Substance: ROFLUMILAST
     Indication: CHRONIC OBSTRUCTIVE PULMONARY DISEASE
     Route: 048
     Dates: start: 20170110, end: 201701
  4. MULTHU [Concomitant]
     Indication: ATRIAL FIBRILLATION

REACTIONS (8)
  - Mood altered [Recovered/Resolved]
  - Aggression [Unknown]
  - Product use issue [Unknown]
  - Agitation [Unknown]
  - Visual impairment [Unknown]
  - Fatigue [Unknown]
  - Feeling abnormal [Recovered/Resolved]
  - Off label use [Unknown]
